FAERS Safety Report 9642225 (Version 2)
Quarter: 2013Q4

REPORT INFORMATION
  Report Type: Spontaneous
  Country: US (occurrence: US)
  Receive Date: 20131024
  Receipt Date: 20131028
  Transmission Date: 20140711
  Serious: No
  Sender: FDA-Public Use
  Company Number: US-009507513-1310USA009588

PATIENT
  Age: 22 Year
  Sex: Female
  Weight: 74.83 kg

DRUGS (1)
  1. NEXPLANON [Suspect]
     Dosage: UNK
     Route: 059
     Dates: start: 20130716

REACTIONS (6)
  - Device breakage [Unknown]
  - Implant site bruising [Unknown]
  - Amenorrhoea [Recovered/Resolved]
  - Headache [Unknown]
  - Dizziness [Unknown]
  - Menorrhagia [Unknown]
